FAERS Safety Report 5357748-4 (Version None)
Quarter: 2007Q2

REPORT INFORMATION
  Report Type: 
  Country: None (occurrence: None)
  Receive Date: 20070614
  Receipt Date: 20070606
  Transmission Date: 20071010
  Serious: Yes (Disabling, Other)
  Sender: FDA-Public Use
  Company Number: GB-ABBOTT-06P-167-0349057-00

PATIENT
  Sex: Female
  Weight: 66 kg

DRUGS (10)
  1. HUMIRA [Suspect]
     Indication: RHEUMATOID ARTHRITIS
     Route: 058
     Dates: start: 20060227, end: 20060424
  2. PREDNISOLONE EC [Concomitant]
     Indication: RHEUMATOID ARTHRITIS
     Route: 048
  3. SIMVASTATIN [Concomitant]
     Indication: BLOOD CHOLESTEROL INCREASED
     Route: 048
  4. LEVOTHYROXINE SODIUM [Concomitant]
     Indication: THYROXINE DECREASED
     Route: 048
  5. ALENDRONATE SODIUM [Concomitant]
     Indication: OSTEOPOROSIS
     Route: 048
     Dates: start: 20030101
  6. CALCIUM WITH VITAMIN D [Concomitant]
     Indication: OSTEOPOROSIS
     Route: 048
     Dates: start: 20030101
  7. AMITRIPTYLINE HCL [Concomitant]
     Indication: PAIN
     Route: 048
     Dates: start: 20030518
  8. ARTIFICIAL TEARS [Concomitant]
     Indication: DRUG USE FOR UNKNOWN INDICATION
  9. ACETAMINOPHEN AND CODEINE PHOSPHATE [Concomitant]
     Indication: DRUG USE FOR UNKNOWN INDICATION
  10. MELOXICAM [Concomitant]
     Indication: DRUG USE FOR UNKNOWN INDICATION

REACTIONS (8)
  - ALVEOLITIS [None]
  - CREPITATIONS [None]
  - HYPERHIDROSIS [None]
  - INTERSTITIAL LUNG DISEASE [None]
  - MALAISE [None]
  - OEDEMA PERIPHERAL [None]
  - SPUTUM DISCOLOURED [None]
  - VENOUS PRESSURE JUGULAR INCREASED [None]
